FAERS Safety Report 15765362 (Version 2)
Quarter: 2019Q1

REPORT INFORMATION
  Report Type: Spontaneous
  Country: NL (occurrence: NL)
  Receive Date: 20181227
  Receipt Date: 20190128
  Transmission Date: 20190417
  Serious: Yes (Hospitalization, Other)
  Sender: FDA-Public Use
  Company Number: NL-SA-2018SA391798

PATIENT
  Sex: Male

DRUGS (12)
  1. SUFENTANIL [Suspect]
     Active Substance: SUFENTANIL
     Dosage: 1 UG/ML
     Route: 064
  2. METOCLOPRAMIDE HYDROCHLORIDE. [Suspect]
     Active Substance: METOCLOPRAMIDE HYDROCHLORIDE
     Indication: RESPIRATORY DISORDER PROPHYLAXIS
     Dosage: 10 MG, UNK
     Route: 064
  3. RANITIDINE. [Suspect]
     Active Substance: RANITIDINE
     Indication: RESPIRATORY DISORDER PROPHYLAXIS
     Dosage: 50 MG, UNK
     Route: 064
  4. ROPIVACAINE. [Suspect]
     Active Substance: ROPIVACAINE HYDROCHLORIDE
     Indication: ANALGESIC THERAPY
     Dosage: 1 DF, UNK, 0.1%
     Route: 064
  5. BUPIVACAINE. [Suspect]
     Active Substance: BUPIVACAINE
     Dosage: 1.2 MG, UNK
     Route: 064
  6. CEFAZOLIN [Suspect]
     Active Substance: CEFAZOLIN
     Dosage: 1 G, UNK
     Route: 064
  7. OXYTOCIN. [Suspect]
     Active Substance: OXYTOCIN
     Dosage: 2.5 IU, QH
     Route: 064
  8. BUPIVACAINE. [Suspect]
     Active Substance: BUPIVACAINE
     Dosage: 7.2 MG
     Route: 064
  9. PHENYLEPHRINE HYDROCHLORIDE. [Suspect]
     Active Substance: PHENYLEPHRINE HYDROCHLORIDE
     Dosage: 0.1-0.4 UG/KG
     Route: 064
  10. OXYTOCIN. [Suspect]
     Active Substance: OXYTOCIN
     Dosage: 1 IU
     Route: 064
  11. PARACETAMOL [Suspect]
     Active Substance: ACETAMINOPHEN
     Dosage: 1 G, UNK, SOLUTION FOR INJECTION
     Route: 064
  12. SUFENTANIL [Suspect]
     Active Substance: SUFENTANIL
     Dosage: 1.8 MCG/MG, UNK
     Route: 064

REACTIONS (3)
  - Premature baby [Unknown]
  - Neonatal respiratory distress syndrome [Unknown]
  - Foetal exposure during pregnancy [Unknown]
